FAERS Safety Report 9502864 (Version 1)
Quarter: 2013Q1

REPORT INFORMATION
  Report Type: Spontaneous
  Country: US (occurrence: None)
  Receive Date: 20130107
  Receipt Date: 20130107
  Transmission Date: 20140127
  Serious: No
  Sender: FDA-Public Use
  Company Number: PHEH2012US018707

PATIENT
  Age: 61 Year
  Sex: Male

DRUGS (2)
  1. GILENYA ( FTY) CAPSULE, 0.5 MG [Suspect]
     Indication: MULTIPLE SCLEROSIS
     Route: 048
     Dates: start: 201106
  2. FAMPRIDINE [Suspect]
     Route: 048

REACTIONS (5)
  - Fall [None]
  - Dysstasia [None]
  - Gait disturbance [None]
  - Fatigue [None]
  - Head injury [None]
